FAERS Safety Report 6446323-6 (Version None)
Quarter: 2009Q4

REPORT INFORMATION
  Report Type: 
  Country: None (occurrence: None)
  Receive Date: 20091110
  Receipt Date: 20090910
  Transmission Date: 20100525
  Serious: No
  Sender: FDA-Public Use
  Company Number: 1000008785

PATIENT
  Age: 70 Year
  Sex: Male

DRUGS (11)
  1. SAVELLA [Suspect]
     Indication: NEUROPATHY PERIPHERAL
     Dosage: SEE IMAGE
     Route: 048
     Dates: start: 20090828, end: 20090828
  2. SAVELLA [Suspect]
     Indication: NEUROPATHY PERIPHERAL
     Dosage: SEE IMAGE
     Route: 048
     Dates: start: 20090829, end: 20090830
  3. SAVELLA [Suspect]
     Indication: NEUROPATHY PERIPHERAL
     Dosage: SEE IMAGE
     Route: 048
     Dates: start: 20090831, end: 20090903
  4. SAVELLA [Suspect]
     Indication: NEUROPATHY PERIPHERAL
     Dosage: SEE IMAGE
     Route: 048
     Dates: start: 20090904
  5. CARDIZEM [Concomitant]
  6. LIPITOR [Concomitant]
  7. ETODOLAC [Concomitant]
  8. FOLIC ACID [Concomitant]
  9. FLOMAX [Concomitant]
  10. AVODART [Concomitant]
  11. ENABLEX [Concomitant]

REACTIONS (5)
  - CHILLS [None]
  - DIARRHOEA [None]
  - FLATULENCE [None]
  - HYPERHIDROSIS [None]
  - PYREXIA [None]
